FAERS Safety Report 7646410-0 (Version None)
Quarter: 2011Q3

REPORT INFORMATION
  Report Type: 
  Country: None (occurrence: None)
  Receive Date: 20110801
  Receipt Date: 20110719
  Transmission Date: 20111222
  Serious: Yes (Other)
  Sender: FDA-Public Use
  Company Number: GB-JNJFOC-20110707850

PATIENT
  Sex: Female

DRUGS (5)
  1. METHOTREXATE [Concomitant]
     Dates: start: 20060405
  2. LANSOPRAZOLE [Concomitant]
     Dates: start: 20100101
  3. REMICADE [Suspect]
     Route: 065
     Dates: start: 20100930
  4. NORDETTE-28 [Concomitant]
  5. REMICADE [Suspect]
     Indication: RHEUMATOID ARTHRITIS
     Route: 065
     Dates: start: 20080605

REACTIONS (1)
  - CERVICAL DYSPLASIA [None]
